FAERS Safety Report 17426913 (Version 2)
Quarter: 2021Q2

REPORT INFORMATION
  Report Type: Report from Study
  Country: BR (occurrence: BR)
  Receive Date: 20200217
  Receipt Date: 20210414
  Transmission Date: 20210716
  Serious: Yes (Other)
  Sender: FDA-Public Use
  Company Number: PHHY2018BR044216

PATIENT
  Sex: Female
  Weight: 62.8 kg

DRUGS (5)
  1. FORASEQ [Suspect]
     Active Substance: BUDESONIDE\FORMOTEROL FUMARATE
     Indication: BRONCHITIS CHRONIC
     Dosage: 60+60 CAPSULE, BID (2 TO 3 TIMES A DAY)
     Route: 065
  2. FORASEQ [Suspect]
     Active Substance: BUDESONIDE\FORMOTEROL FUMARATE
     Indication: ASTHMA
     Dosage: UNK UNK, BID
     Route: 065
  3. DESLORATADINE. [Suspect]
     Active Substance: DESLORATADINE
     Indication: PRODUCT USED FOR UNKNOWN INDICATION
     Dosage: 8 TABLETS
     Route: 065
  4. AMINOFILINA [Concomitant]
     Active Substance: AMINOPHYLLINE
     Indication: PRODUCT USED FOR UNKNOWN INDICATION
     Dosage: UNK
     Route: 065
  5. ALENIA [Concomitant]
     Indication: PRODUCT USED FOR UNKNOWN INDICATION
     Dosage: UNK
     Route: 065

REACTIONS (17)
  - Dyspnoea [Not Recovered/Not Resolved]
  - Aphonia [Unknown]
  - Illness [Unknown]
  - Cardiac disorder [Unknown]
  - Arrhythmia [Unknown]
  - Gait inability [Unknown]
  - Lung disorder [Unknown]
  - Speech disorder [Unknown]
  - Diverticulitis [Unknown]
  - Choking sensation [Unknown]
  - Dysphonia [Unknown]
  - Feeling hot [Unknown]
  - Breath sounds abnormal [Unknown]
  - Pruritus [Unknown]
  - Hypersensitivity [Unknown]
  - Drug ineffective [Unknown]
  - Wheezing [Unknown]
